FAERS Safety Report 21362280 (Version 5)
Quarter: 2022Q4

REPORT INFORMATION
  Report Type: Report from Study
  Country: AR (occurrence: AR)
  Receive Date: 20220922
  Receipt Date: 20221115
  Transmission Date: 20230112
  Serious: Yes (Death, Hospitalization)
  Sender: FDA-Public Use
  Company Number: AR-NOVARTISPH-NVSC2022AR212739

PATIENT
  Age: 61 Year
  Sex: Male

DRUGS (4)
  1. MEKINIST [Suspect]
     Active Substance: TRAMETINIB DIMETHYL SULFOXIDE
     Indication: Metastatic malignant melanoma
     Dosage: 2 MG, QD (DAILY)
     Route: 048
     Dates: start: 20220601, end: 20220915
  2. TAFINLAR [Suspect]
     Active Substance: DABRAFENIB MESYLATE
     Indication: Metastatic malignant melanoma
     Dosage: UNK, QD
     Route: 048
     Dates: start: 20220601
  3. TAFINLAR [Suspect]
     Active Substance: DABRAFENIB MESYLATE
     Dosage: 75 MG, Q12H (2 CAPSULE OF 75 MG)
     Route: 048
  4. TAFINLAR [Suspect]
     Active Substance: DABRAFENIB MESYLATE
     Dosage: 300 MG, QD (DAILY)
     Route: 048
     Dates: start: 20220601, end: 20220915

REACTIONS (10)
  - Cardio-respiratory arrest [Fatal]
  - Cerebral haematoma [Fatal]
  - Confusional state [Unknown]
  - Haemorrhage [Unknown]
  - Metastases to central nervous system [Unknown]
  - Asthenia [Unknown]
  - Urinary incontinence [Unknown]
  - Cerebral thrombosis [Unknown]
  - Inappropriate schedule of product administration [Unknown]
  - Bradykinesia [Unknown]

NARRATIVE: CASE EVENT DATE: 20220915
